FAERS Safety Report 19621654 (Version 1)
Quarter: 2021Q3

REPORT INFORMATION
  Report Type: Spontaneous
  Country: NL (occurrence: NL)
  Receive Date: 20210728
  Receipt Date: 20210728
  Transmission Date: 20211014
  Serious: Yes (Other)
  Sender: FDA-Public Use
  Company Number: NL-TEVA-2021-NL-1936665

PATIENT
  Age: 81 Year
  Sex: Female
  Weight: 56 kg

DRUGS (13)
  1. METOPROLOL TABLET MGA 100MG (SUCCINAAT) / BRAND NAME NOT SPECIFIED [Concomitant]
     Dosage: 100 MG (MILLIGRAM) ,THERAPY START DATE AND END DATE : ASKU
  2. MIRTAZAPINE TABLET 15MG / BRAND NAME NOT SPECIFIED [Concomitant]
     Active Substance: MIRTAZAPINE
     Dosage: 15 MG (MILLIGRAM) ,THERAPY START DATE AND END DATE : ASKU
  3. PANTOPRAZOL TABLET MSR 20MG / BRAND NAME NOT SPECIFIED [Concomitant]
     Active Substance: PANTOPRAZOLE
     Dosage: 20 MG (MILLIGRAM) ,THERAPY START DATE AND END DATE : ASKU
  4. CLOPIDOGREL TABLET   75MG / BRAND NAME NOT SPECIFIED [Concomitant]
     Active Substance: CLOPIDOGREL BISULFATE
     Dosage: 75 MG (MILLIGRAM) ,THERAPY START DATE AND END DATE : ASKU
  5. TEMAZEPAM CAPSULE 10MG / BRAND NAME NOT SPECIFIED [Concomitant]
     Active Substance: TEMAZEPAM
     Dosage: 10 MG (MILLIGRAM) ,THERAPY START DATE AND END DATE : ASKU
  6. CETOMACROGOL CREME / BRAND NAME NOT SPECIFIED [Concomitant]
     Dosage: THERAPY START DATE AND END DATE : ASKU
  7. DEXTRAN 70/HYPROMELLOSE OOGDR 1/3MG/ML / BRAND NAME NOT SPECIFIED [Concomitant]
     Dosage: 1/3 MG/ML (MILLIGRAM PER MILLILITER) , THERAPY START DATE AND END DATE : ASKU
  8. AMILORIDE/HYDROCHLOORTHIAZIDE TABLET 5/50MG / BRAND NAME NOT SPECIFIED [Concomitant]
     Dosage: 5/50 MG (MILLIGRAM) , THERAPY START DATE AND END DATE : ASKU
  9. LETROZOL TABLET OMHULD 2,5MG / BRAND NAME NOT SPECIFIED [Suspect]
     Active Substance: LETROZOLE
     Indication: BREAST CANCER
     Dosage: 1D1 , UNIT DOSE : 2.5 MG
     Dates: start: 2019, end: 20210601
  10. SIMVASTATINE TABLET FO 40MG / BRAND NAME NOT SPECIFIED [Concomitant]
     Active Substance: SIMVASTATIN
     Dosage: 40 MG (MILLIGRAM) ,THERAPY START DATE AND END DATE : ASKU
  11. TIOTROPIUM/OLODATEROL VERNEVELVLST 2,5/2,5UG/DO / SPIOLTO RESPIMAT INH [Concomitant]
     Active Substance: OLODATEROL\TIOTROPIUM
     Dosage: 2.5/2.5 UG/DOSE (MICROGRAMS PER DOSE) ,THERAPY START DATE AND END DATE : ASKU
  12. SALBUTAMOL AEROSOL 100UG/DO / BRAND NAME NOT SPECIFIED [Concomitant]
     Active Substance: ALBUTEROL
     Dosage: AEROSOL, 100 UG/DOSE (MICROGRAMS PER DOSE) , THERAPY START DATE AND END DATE : ASKU
  13. CALCIUMCARB/COLECALC KAUWTB 2,5G/880IE (1000MG CA) / BRAND NAME NOT SP [Concomitant]
     Dosage: 2.5 G (GRAMS)/880 UNITS , THERAPY START DATE AND END DATE : ASKU

REACTIONS (3)
  - Cognitive disorder [Recovering/Resolving]
  - Gait disturbance [Recovering/Resolving]
  - Depressed mood [Recovering/Resolving]

NARRATIVE: CASE EVENT DATE: 20190601
